FAERS Safety Report 4753275-3 (Version None)
Quarter: 2005Q3

REPORT INFORMATION
  Report Type: 
  Country: None (occurrence: None)
  Receive Date: 20050826
  Receipt Date: 20050819
  Transmission Date: 20060218
  Serious: Yes (Other)
  Sender: FDA-Public Use
  Company Number: US-BRISTOL-MYERS SQUIBB COMPANY-13085394

PATIENT
  Sex: Male

DRUGS (3)
  1. ERBITUX [Suspect]
     Indication: NEOPLASM MALIGNANT
     Dosage: SECOND DOSE OF 250 MG/M2 ADMINISTERED ON 10-AUG-2005.  ERBITUX INTERRUPTED (DATE NOT REPORTED).
     Route: 041
     Dates: start: 20050803, end: 20050803
  2. CARBOPLATIN [Suspect]
     Indication: NEOPLASM MALIGNANT
  3. PACLITAXEL [Suspect]
     Indication: NEOPLASM MALIGNANT

REACTIONS (2)
  - DYSPNOEA [None]
  - OXYGEN SATURATION DECREASED [None]
